FAERS Safety Report 14213127 (Version 1)
Quarter: 2017Q4

REPORT INFORMATION
  Report Type: Spontaneous
  Country: FR (occurrence: FR)
  Receive Date: 20171122
  Receipt Date: 20171122
  Transmission Date: 20180321
  Serious: Yes (Hospitalization)
  Sender: FDA-Public Use
  Company Number: FR-MERCK KGAA-2034849

PATIENT
  Age: 62 Year
  Sex: Female

DRUGS (2)
  1. RABEPRAZOLE [Concomitant]
     Active Substance: RABEPRAZOLE
  2. NOVOTHYROX [Suspect]
     Active Substance: LEVOTHYROXINE SODIUM
     Indication: THYROIDECTOMY
     Route: 048
     Dates: start: 20170518, end: 20171020

REACTIONS (8)
  - Diarrhoea [Recovered/Resolved]
  - Vision blurred [Not Recovered/Not Resolved]
  - Muscle spasms [Not Recovered/Not Resolved]
  - Muscular weakness [Not Recovered/Not Resolved]
  - Vomiting [Recovered/Resolved]
  - Migraine [Not Recovered/Not Resolved]
  - Uterine haemorrhage [Recovered/Resolved]
  - Hypertension [Recovered/Resolved]

NARRATIVE: CASE EVENT DATE: 201706
